FAERS Safety Report 18076195 (Version 1)
Quarter: 2020Q3

REPORT INFORMATION
  Report Type: Spontaneous
  Country: US (occurrence: US)
  Receive Date: 20200727
  Receipt Date: 20200727
  Transmission Date: 20201103
  Serious: No
  Sender: FDA-Public Use
  Company Number: US-ABBVIE-20K-163-3401779-00

PATIENT
  Sex: Female

DRUGS (1)
  1. SYNTHROID [Suspect]
     Active Substance: LEVOTHYROXINE SODIUM
     Indication: PRODUCT USED FOR UNKNOWN INDICATION
     Route: 048
     Dates: end: 202002

REACTIONS (12)
  - Mental impairment [Recovered/Resolved]
  - Muscle spasms [Recovered/Resolved]
  - Skin disorder [Recovered/Resolved]
  - Fatigue [Unknown]
  - Freezing phenomenon [Recovered/Resolved]
  - Asthenia [Recovered/Resolved]
  - Food craving [Recovered/Resolved]
  - Depression [Unknown]
  - Thyroid disorder [Unknown]
  - Feeling abnormal [Recovered/Resolved]
  - Drug ineffective [Unknown]
  - Peripheral swelling [Recovered/Resolved]
